FAERS Safety Report 4535315-X (Version None)
Quarter: 2004Q4

REPORT INFORMATION
  Report Type: 
  Country: None (occurrence: None)
  Receive Date: 20041214
  Receipt Date: 20040929
  Transmission Date: 20050328
  Serious: No
  Sender: FDA-Public Use
  Company Number: 2004238135US

PATIENT
  Sex: Female

DRUGS (1)
  1. BEXTRA [Suspect]
     Indication: HEADACHE
     Dosage: 10 MG, QD, ORAL
     Route: 048
     Dates: start: 20040927

REACTIONS (3)
  - CONDITION AGGRAVATED [None]
  - HEADACHE [None]
  - SNEEZING [None]
